FAERS Safety Report 17033478 (Version 3)
Quarter: 2020Q2

REPORT INFORMATION
  Report Type: Report from Study
  Country: US (occurrence: US)
  Receive Date: 20191114
  Receipt Date: 20200501
  Transmission Date: 20200713
  Serious: No
  Sender: FDA-Public Use
  Company Number: NVSC2019US036154

PATIENT
  Sex: Female

DRUGS (2)
  1. MAYZENT [Suspect]
     Active Substance: SIPONIMOD
     Indication: SECONDARY PROGRESSIVE MULTIPLE SCLEROSIS
     Dosage: 2 MG, QD
     Route: 048
  2. LYRICA [Concomitant]
     Active Substance: PREGABALIN
     Indication: PRODUCT USED FOR UNKNOWN INDICATION
     Dosage: UNK
     Route: 065

REACTIONS (11)
  - Myalgia [Recovering/Resolving]
  - Poor quality sleep [Not Recovered/Not Resolved]
  - Sleep disorder [Unknown]
  - Urinary incontinence [Unknown]
  - Pyrexia [Unknown]
  - Pain [Not Recovered/Not Resolved]
  - Sciatic nerve injury [Recovering/Resolving]
  - Bronchitis [Recovering/Resolving]
  - Nausea [Unknown]
  - Vitamin D decreased [Unknown]
  - Amnesia [Unknown]
